FAERS Safety Report 7414304-1 (Version None)
Quarter: 2011Q2

REPORT INFORMATION
  Report Type: 
  Country: None (occurrence: None)
  Receive Date: 20110411
  Receipt Date: 20110411
  Transmission Date: 20111010
  Serious: Yes (Hospitalization)
  Sender: FDA-Public Use
  Company Number: None

PATIENT
  Sex: Male
  Weight: 2.84 kg

DRUGS (2)
  1. HALDOL [Suspect]
     Indication: SCHIZOAFFECTIVE DISORDER
     Dosage: 5 MG Q3 PRN PO
     Route: 048
     Dates: start: 20100901, end: 20110313
  2. SEROQUEL [Suspect]
     Dosage: 300 MG Q DAY PO
     Route: 048
     Dates: start: 20100901, end: 20110313

REACTIONS (5)
  - TREMOR [None]
  - DIARRHOEA [None]
  - FEEDING DISORDER OF INFANCY OR EARLY CHILDHOOD [None]
  - EXTRAPYRAMIDAL DISORDER [None]
  - HYPERTONIA [None]
